FAERS Safety Report 7189384-1 (Version None)
Quarter: 2010Q4

REPORT INFORMATION
  Report Type: 
  Country: None (occurrence: None)
  Receive Date: 20101222
  Receipt Date: 20100910
  Transmission Date: 20110411
  Serious: No
  Sender: FDA-Public Use
  Company Number: US-AMGEN-TCS422964

PATIENT

DRUGS (9)
  1. ENBREL [Suspect]
     Indication: RHEUMATOID ARTHRITIS
     Dosage: 50 MG, QWK
     Route: 058
     Dates: start: 20100407, end: 20100729
  2. TRAMADOL HYDROCHLORIDE [Concomitant]
  3. ZOLPIDEM TARTRATE [Concomitant]
     Dosage: UNK UNK, UNK
  4. DEXTROPROPOXYPHENE NAPSILATE W/ ACETAMINOPHEN [Concomitant]
  5. ALPRAZOLAM [Concomitant]
  6. WARFARIN SODIUM [Concomitant]
  7. VALSARTAN/HYDROCHLOROTHIAZIDE [Concomitant]
  8. TAMSULOSIN HCL [Concomitant]
  9. LEVOTHYROXINE SODIUM [Concomitant]

REACTIONS (3)
  - ERYTHEMA [None]
  - INSOMNIA [None]
  - PRURITUS [None]
